FAERS Safety Report 9643609 (Version 3)
Quarter: 2014Q1

REPORT INFORMATION
  Report Type: Spontaneous
  Country: JP (occurrence: JP)
  Receive Date: 20131024
  Receipt Date: 20140101
  Transmission Date: 20141002
  Serious: Yes (Other)
  Sender: FDA-Public Use
  Company Number: PHHY2013JP118212

PATIENT
  Age: 55 Year
  Sex: Female

DRUGS (15)
  1. CICLOSPORIN [Suspect]
     Indication: LIVER TRANSPLANT
     Dosage: 150 MG, UNK
     Route: 048
  2. CICLOSPORIN [Suspect]
     Dosage: 75 MG, UNK
     Route: 048
  3. TACROLIMUS [Suspect]
     Indication: PROPHYLAXIS AGAINST TRANSPLANT REJECTION
     Route: 048
  4. NEXUM [Suspect]
     Route: 048
  5. MUCOSTA [Suspect]
  6. RAPAMYCIN [Suspect]
  7. PREDNISOLONE [Concomitant]
     Indication: CHOLANGITIS SCLEROSING
     Dosage: 5 MG, UNK
     Route: 048
  8. PREDNISOLONE [Concomitant]
     Dosage: 20 MG, UNK
     Route: 048
  9. PREDNISOLONE [Concomitant]
     Dosage: 2.5 MG, UNK
     Route: 048
  10. LEVOTHYROXINE [Concomitant]
     Indication: HYPOTHYROIDISM
     Route: 048
  11. PURSENNID//SENNOSIDE A+B CALCIUM [Concomitant]
     Route: 048
  12. BAKTAR [Concomitant]
     Route: 048
  13. THYRADIN [Concomitant]
     Route: 048
  14. RIVOTRIL [Concomitant]
     Route: 048
  15. LYRICA [Concomitant]
     Route: 048

REACTIONS (6)
  - Neuralgic amyotrophy [Recovering/Resolving]
  - Hypoaesthesia [Recovering/Resolving]
  - Pain in extremity [Recovering/Resolving]
  - Muscular weakness [Recovering/Resolving]
  - Liver transplant rejection [Unknown]
  - Neuropathy peripheral [Recovered/Resolved]
